FAERS Safety Report 11290684 (Version 1)
Quarter: 2015Q3

REPORT INFORMATION
  Report Type: Spontaneous
  Country: US (occurrence: None)
  Receive Date: 20150720
  Receipt Date: 20150720
  Transmission Date: 20151125
  Serious: No
  Sender: FDA-Public Use
  Company Number: None

PATIENT
  Age: 67 Year
  Sex: Female

DRUGS (8)
  1. STELARA [Suspect]
     Active Substance: USTEKINUMAB
     Indication: PSORIATIC ARTHROPATHY
     Dosage: 90MG, Q3 MONTHS, SQ
     Route: 058
     Dates: start: 20140123, end: 201504
  2. LEFLUNOCMIDE [Concomitant]
  3. RANITIDINE [Concomitant]
     Active Substance: RANITIDINE\RANITIDINE HYDROCHLORIDE
  4. BONIVA [Concomitant]
     Active Substance: IBANDRONATE SODIUM
  5. OMEPRAZOLE. [Concomitant]
     Active Substance: OMEPRAZOLE
  6. OXYBUTYNIN [Concomitant]
     Active Substance: OXYBUTYNIN
  7. NAPROXEN. [Concomitant]
     Active Substance: NAPROXEN
  8. VOLTAREN [Concomitant]
     Active Substance: DICLOFENAC SODIUM

REACTIONS (1)
  - Drug ineffective [None]

NARRATIVE: CASE EVENT DATE: 20150424
